FAERS Safety Report 6973605-1 (Version None)
Quarter: 2010Q3

REPORT INFORMATION
  Report Type: 
  Country: None (occurrence: None)
  Receive Date: 20100909
  Receipt Date: 20100831
  Transmission Date: 20110219
  Serious: Yes (Other)
  Sender: FDA-Public Use
  Company Number: US-B.I. PHARMACEUTICALS,INC./RIDGEFIELD-2010-BP-09869BP

PATIENT
  Age: 51 Year
  Sex: Female
  Weight: 90.7 kg

DRUGS (7)
  1. MIRAPEX [Suspect]
     Indication: RESTLESS LEGS SYNDROME
     Dosage: 0.25 MG
     Route: 048
     Dates: start: 20030101
  2. CHANTIX [Suspect]
     Indication: SMOKING CESSATION THERAPY
     Route: 048
     Dates: start: 20081201
  3. CHANTIX [Suspect]
     Route: 048
     Dates: start: 20090401
  4. CHANTIX [Suspect]
     Route: 048
     Dates: start: 20100601, end: 20100811
  5. ACETYLSALICYLIC ACID [Concomitant]
     Dosage: 81 MG
     Dates: start: 20070101
  6. PROZAC [Concomitant]
     Indication: DEPRESSION
     Dosage: 20 MG
     Dates: start: 19900101
  7. RITALIN [Concomitant]
     Indication: ASTHENIA
     Dates: start: 20020101, end: 20070101

REACTIONS (18)
  - ANGER [None]
  - ASTHENIA [None]
  - FATIGUE [None]
  - FEELING ABNORMAL [None]
  - FRUSTRATION [None]
  - GALLBLADDER DISORDER [None]
  - HOT FLUSH [None]
  - INSOMNIA [None]
  - JOINT INJURY [None]
  - KIDNEY INFECTION [None]
  - LIMB INJURY [None]
  - MENSTRUATION IRREGULAR [None]
  - SCREAMING [None]
  - SLEEP APNOEA SYNDROME [None]
  - STRESS [None]
  - SUICIDAL IDEATION [None]
  - TOBACCO WITHDRAWAL SYMPTOMS [None]
  - WEIGHT INCREASED [None]
